FAERS Safety Report 5596926-6 (Version None)
Quarter: 2007Q4

REPORT INFORMATION
  Report Type: 
  Country: None (occurrence: None)
  Receive Date: 20071220
  Receipt Date: 20071126
  Transmission Date: 20080405
  Serious: Yes (Other)
  Sender: FDA-Public Use
  Company Number: A03200706692

PATIENT
  Age: 46 Year
  Sex: Male

DRUGS (3)
  1. AMBIEN [Suspect]
     Indication: ANXIETY
     Dosage: 12.5 MG HS-ORAL
     Route: 048
     Dates: start: 20071117, end: 20071121
  2. LISINOPRIL [Concomitant]
  3. ESOMEPRAZOLE MAGNESIUM [Concomitant]

REACTIONS (4)
  - DRUG INEFFECTIVE [None]
  - HEADACHE [None]
  - PANIC ATTACK [None]
  - THERAPY REGIMEN CHANGED [None]
